FAERS Safety Report 4284478-2 (Version None)
Quarter: 2004Q1

REPORT INFORMATION
  Report Type: 
  Country: None (occurrence: None)
  Receive Date: 20040130
  Receipt Date: 20040130
  Transmission Date: 20041129
  Serious: Yes (Other)
  Sender: FDA-Public Use
  Company Number: None

PATIENT
  Sex: Female
  Weight: 91.173 kg

DRUGS (4)
  1. PROZAC [Suspect]
     Indication: ANXIETY
     Dosage: 40 MG PO QD
     Route: 048
     Dates: start: 20040123, end: 20040126
  2. PROZAC [Suspect]
     Indication: DEPRESSION
     Dosage: 40 MG PO QD
     Route: 048
     Dates: start: 20040123, end: 20040126
  3. ADDERALL [Concomitant]
  4. CLONIDINE [Concomitant]

REACTIONS (3)
  - AGITATION [None]
  - ANXIETY [None]
  - PHARMACEUTICAL PRODUCT COMPLAINT [None]
